FAERS Safety Report 4512800-8 (Version None)
Quarter: 2004Q4

REPORT INFORMATION
  Report Type: 
  Country: None (occurrence: None)
  Receive Date: 20041119
  Receipt Date: 20041119
  Transmission Date: 20050328
  Serious: Yes (Other)
  Sender: FDA-Public Use
  Company Number: None

PATIENT
  Sex: Male
  Weight: 141.5223 kg

DRUGS (1)
  1. GLIPIZIDE [Suspect]
     Dosage: 5 MG 1 BID
     Dates: start: 20040421

REACTIONS (1)
  - PHOTODERMATOSIS [None]
